FAERS Safety Report 4975553-5 (Version None)
Quarter: 2006Q1

REPORT INFORMATION
  Report Type: 
  Country: None (occurrence: None)
  Receive Date: 20060223
  Receipt Date: 20051210
  Transmission Date: 20060701
  Serious: No
  Sender: FDA-Public Use
  Company Number: SUSI-2005-00886

PATIENT
  Age: 58 Year
  Sex: Male
  Weight: 99.8 kg

DRUGS (1)
  1. FOSRENOL [Suspect]
     Indication: HYPERPHOSPHATAEMIA
     Dosage: 500 MG
     Dates: start: 20050701

REACTIONS (1)
  - SENSITIVITY OF TEETH [None]
